FAERS Safety Report 5079895-7 (Version None)
Quarter: 2006Q3

REPORT INFORMATION
  Report Type: 
  Country: None (occurrence: None)
  Receive Date: 20060810
  Receipt Date: 20060726
  Transmission Date: 20061208
  Serious: No
  Sender: FDA-Public Use
  Company Number: MX200607004972

PATIENT
  Age: 40 Year
  Sex: Male

DRUGS (4)
  1. OLANZAPINE + FLUOXETINE HCL [Suspect]
     Indication: MAJOR DEPRESSION
  2. PROZAC [Suspect]
     Indication: MAJOR DEPRESSION
     Dosage: 20
  3. ZYPREXA [Suspect]
     Dosage: 5
  4. AMITRIPTYLINE (AMITRIPTYLINE) [Concomitant]

REACTIONS (4)
  - HAEMATURIA [None]
  - PRURITUS [None]
  - SWELLING [None]
  - WEIGHT INCREASED [None]
